FAERS Safety Report 8614951-5 (Version None)
Quarter: 2012Q3

REPORT INFORMATION
  Report Type: 
  Country: None (occurrence: None)
  Receive Date: 20120814
  Receipt Date: 20120814
  Transmission Date: 20120928
  Serious: No
  Sender: FDA-Public Use
  Company Number: None

PATIENT
  Age: 55 Year
  Sex: Female
  Weight: 73.4827 kg

DRUGS (2)
  1. LAMOTRIGINE [Suspect]
     Indication: DEPRESSION
     Dosage: 100 MG EVERY NIGHT
     Dates: start: 20060101, end: 20120101
  2. LAMOTRIGINE [Suspect]
     Indication: ANXIETY
     Dosage: 100 MG EVERY NIGHT
     Dates: start: 20060101, end: 20120101

REACTIONS (2)
  - DRUG EFFECT DECREASED [None]
  - PRODUCT SUBSTITUTION ISSUE [None]
